FAERS Safety Report 10572457 (Version 2)
Quarter: 2015Q1

REPORT INFORMATION
  Report Type: Spontaneous
  Country: IT (occurrence: IT)
  Receive Date: 20141110
  Receipt Date: 20150205
  Transmission Date: 20150720
  Serious: Yes (Hospitalization)
  Sender: FDA-Public Use
  Company Number: IT-ROCHE-1485637

PATIENT
  Age: 74 Year
  Sex: Male

DRUGS (9)
  1. ROCEFIN [Suspect]
     Active Substance: CEFTRIAXONE SODIUM
     Indication: PRODUCT USED FOR UNKNOWN INDICATION
     Dosage: 1G/3,5 ML POWDER AND SOLUTION FOR INJECTABLE SOLUTION
     Route: 030
     Dates: start: 20141019, end: 20141029
  2. ZYLORIC [Concomitant]
     Active Substance: ALLOPURINOL
     Dosage: 100MG TABS 50 DIVISIBLE TABLETS
     Route: 048
  3. BISOPROLOL FUMARATE. [Concomitant]
     Active Substance: BISOPROLOL FUMARATE
  4. NORVASC [Concomitant]
     Active Substance: AMLODIPINE BESYLATE
     Dosage: 5 MG TABLETS, 28 TABLETS
     Route: 048
  5. AMIODARONE HYDROCHLORIDE. [Concomitant]
     Active Substance: AMIODARONE HYDROCHLORIDE
  6. COUMADIN [Interacting]
     Active Substance: WARFARIN SODIUM
     Indication: PRODUCT USED FOR UNKNOWN INDICATION
     Route: 048
     Dates: start: 20101001, end: 20141029
  7. RAMIPRIL. [Concomitant]
     Active Substance: RAMIPRIL
  8. LASIX [Concomitant]
     Active Substance: FUROSEMIDE
     Dosage: 25 MG TABLETS, 30 TABLETS
     Route: 048
  9. TORVAST [Concomitant]
     Active Substance: ATORVASTATIN
     Dosage: 10 TABLETS 10MG
     Route: 048

REACTIONS (2)
  - Hypocoagulable state [Recovered/Resolved]
  - Drug interaction [Unknown]

NARRATIVE: CASE EVENT DATE: 20141029
